FAERS Safety Report 4602225-9 (Version None)
Quarter: 2005Q1

REPORT INFORMATION
  Report Type: 
  Country: None (occurrence: None)
  Receive Date: 20050201
  Receipt Date: 20040910
  Transmission Date: 20050727
  Serious: Yes (Hospitalization)
  Sender: FDA-Public Use
  Company Number: 200420519BWH

PATIENT
  Age: 57 Year
  Sex: Female

DRUGS (1)
  1. AVELOX [Suspect]
     Indication: PYREXIA
     Dates: start: 20040903

REACTIONS (4)
  - DELIRIUM [None]
  - HALLUCINATION [None]
  - MENTAL STATUS CHANGES [None]
  - PSYCHOTIC DISORDER [None]
